FAERS Safety Report 4297231-0 (Version None)
Quarter: 2004Q1

REPORT INFORMATION
  Report Type: 
  Country: None (occurrence: None)
  Receive Date: 20040116
  Receipt Date: 20040116
  Transmission Date: 20041129
  Serious: No
  Sender: FDA-Public Use
  Company Number: None

PATIENT
  Age: 48 Year
  Sex: Female

DRUGS (3)
  1. AUGMENTIN XR [Suspect]
     Indication: INFECTION
     Dosage: TABLETS
  2. AUGMENTIN XR [Suspect]
     Indication: NEURALGIA
     Dosage: TABLETS
  3. NEURONTIN [Suspect]
     Dosage: CAPSULES

REACTIONS (1)
  - MEDICATION ERROR [None]
